FAERS Safety Report 12310366 (Version 1)
Quarter: 2016Q2

REPORT INFORMATION
  Report Type: Spontaneous
  Country: US (occurrence: None)
  Receive Date: 20160426
  Receipt Date: 20160426
  Transmission Date: 20160815
  Serious: Yes (Other)
  Sender: FDA-Public Use
  Company Number: None

PATIENT
  Age: 34 Year
  Sex: Female
  Weight: 72.58 kg

DRUGS (5)
  1. INSULIN PUMP [Concomitant]
     Active Substance: INSULIN NOS
  2. APIDRA [Concomitant]
     Active Substance: INSULIN GLULISINE
  3. DOXYCYCLINE. [Concomitant]
     Active Substance: DOXYCYCLINE
  4. METRONIDAZOLE. [Concomitant]
     Active Substance: METRONIDAZOLE
  5. MIRVASO [Suspect]
     Active Substance: BRIMONIDINE TARTRATE
     Indication: ROSACEA
     Dosage: IN THE MORNING APPLIED TO A SURFACE, USUALLY THE SKIN
     Route: 061
     Dates: start: 20160423

REACTIONS (4)
  - Application site erythema [None]
  - Burning sensation [None]
  - Application site reaction [None]
  - Flushing [None]

NARRATIVE: CASE EVENT DATE: 20160423
